FAERS Safety Report 8863786 (Version 1)
Quarter: 2012Q4

REPORT INFORMATION
  Report Type: 
  Country: US (occurrence: US)
  Receive Date: 20121024
  Receipt Date: 20121024
  Transmission Date: 20130627
  Serious: Yes (Hospitalization, Other)
  Sender: FDA-Public Use
  Company Number: US-AMGEN-USASP2011063892

PATIENT
  Age: 34 Year
  Sex: Female

DRUGS (1)
  1. ENBREL [Suspect]
     Indication: RHEUMATOID ARTHRITIS
     Dosage: 50 mg, qwk
     Dates: start: 20110110, end: 201106

REACTIONS (4)
  - Leukaemia [Recovered/Resolved]
  - Lymphoma [Recovered/Resolved]
  - Pneumonia [Recovered/Resolved]
  - Infection [Recovered/Resolved]
